FAERS Safety Report 10204544 (Version 1)
Quarter: 2014Q2

REPORT INFORMATION
  Report Type: Spontaneous
  Country: US (occurrence: US)
  Receive Date: 20140529
  Receipt Date: 20140529
  Transmission Date: 20141212
  Serious: No
  Sender: FDA-Public Use
  Company Number: US-SANOFI-AVENTIS-2013SA064784

PATIENT
  Sex: Female

DRUGS (3)
  1. SOLOSTAR [Suspect]
     Dosage: PRODUCT STARTED ONE MONTH AGO.
  2. LANTUS SOLOSTAR [Suspect]
     Dosage: PRODUCT STARTED ONE MONTH AGO. DOSE:12 UNIT(S)
     Route: 051
  3. LANTUS SOLOSTAR [Suspect]
     Dosage: DOSE:17 UNIT(S)
     Route: 051

REACTIONS (2)
  - Injury associated with device [Unknown]
  - Blood glucose increased [Unknown]
